FAERS Safety Report 8882617 (Version 1)
Quarter: 2012Q4

REPORT INFORMATION
  Report Type: 
  Country: CA (occurrence: CA)
  Receive Date: 20121104
  Receipt Date: 20121104
  Transmission Date: 20130627
  Serious: Yes (Hospitalization, Other)
  Sender: FDA-Public Use
  Company Number: PHMT2006CA01742

PATIENT
  Sex: Male

DRUGS (1)
  1. ZOMETA [Suspect]
     Indication: PROSTATE CANCER
     Dosage: 3.5 mg, UNK
     Dates: start: 20060208

REACTIONS (7)
  - Malaise [Unknown]
  - General physical health deterioration [Unknown]
  - Glomerular filtration rate decreased [Unknown]
  - Prostatic specific antigen increased [Unknown]
  - Hypocalcaemia [Unknown]
  - Blood urea increased [Unknown]
  - Blood creatinine increased [Unknown]
